FAERS Safety Report 4378652-4 (Version None)
Quarter: 2004Q2

REPORT INFORMATION
  Report Type: 
  Country: None (occurrence: None)
  Receive Date: 20040610
  Receipt Date: 20040603
  Transmission Date: 20050107
  Serious: Yes (Other)
  Sender: FDA-Public Use
  Company Number: 2004-06-0162

PATIENT
  Age: 60 Year
  Sex: Male
  Weight: 59 kg

DRUGS (2)
  1. REBETOL [Suspect]
     Indication: HEPATITIS C
     Dosage: 600 MG ORAL
     Route: 048
     Dates: start: 20040409, end: 20040519
  2. INTRON A [Suspect]
     Indication: HEPATITIS C
     Dosage: 10 MU INTRAMUSCULAR
     Route: 030
     Dates: start: 20040409, end: 20040519

REACTIONS (1)
  - OPHTHALMOLOGICAL EXAMINATION ABNORMAL [None]
